FAERS Safety Report 20314167 (Version 1)
Quarter: 2022Q1

REPORT INFORMATION
  Report Type: Spontaneous
  Country: US (occurrence: US)
  Receive Date: 20220109
  Receipt Date: 20220109
  Transmission Date: 20220424
  Serious: No
  Sender: FDA-Public Use
  Company Number: US-SA-SAC20220103001168

PATIENT
  Sex: Female

DRUGS (2)
  1. AUBAGIO [Suspect]
     Active Substance: TERIFLUNOMIDE
     Indication: Multiple sclerosis
     Dosage: 1 DF, QD
     Route: 048
     Dates: start: 2017
  2. COVID-19 VACCINE [Concomitant]
     Dosage: UNK

REACTIONS (3)
  - Nasopharyngitis [Unknown]
  - Vomiting [Unknown]
  - Nausea [Unknown]
